FAERS Safety Report 14970043 (Version 1)
Quarter: 2018Q2

REPORT INFORMATION
  Report Type: Spontaneous
  Country: GT (occurrence: US)
  Receive Date: 20180512
  Receipt Date: 20180512
  Transmission Date: 20180711
  Serious: Yes (Life-Threatening, Hospitalization, Disabling)
  Sender: FDA-Public Use
  Company Number: None

PATIENT
  Age: 27 Year
  Sex: Female
  Weight: 53 kg

DRUGS (7)
  1. PREDNISOLONA [Concomitant]
     Active Substance: PREDNISOLONE
  2. ACIDO FOLICO [Concomitant]
     Active Substance: CYANOCOBALAMIN\FOLIC ACID\PYRIDOXINE HYDROCHLORIDE
  3. METOTREXATE [Concomitant]
     Active Substance: METHOTREXATE SODIUM
  4. AZATHIOPRIME [Concomitant]
  5. HIDROXIN [Concomitant]
  6. VITAMIN D3 [Concomitant]
     Active Substance: CHOLECALCIFEROL
  7. QUINOLEV 500MG [Suspect]
     Active Substance: LEVOFLOXACIN
     Indication: EAR INFECTION
     Dosage: ?          QUANTITY:10 DF DOSAGE FORM;?
     Route: 048
     Dates: start: 20170527, end: 20170604

REACTIONS (8)
  - Swelling face [None]
  - Feeling abnormal [None]
  - Arthralgia [None]
  - Joint swelling [None]
  - Immune system disorder [None]
  - Economic problem [None]
  - Hypersensitivity [None]
  - Oedema peripheral [None]

NARRATIVE: CASE EVENT DATE: 20170604
